FAERS Safety Report 10146256 (Version 1)
Quarter: 2014Q2

REPORT INFORMATION
  Report Type: Spontaneous
  Country: US (occurrence: US)
  Receive Date: 20140501
  Receipt Date: 20140501
  Transmission Date: 20141212
  Serious: Yes (Death)
  Sender: FDA-Public Use
  Company Number: US-PFIZER INC-2014120377

PATIENT
  Sex: 0

DRUGS (1)
  1. INLYTA [Suspect]
     Dosage: UNK

REACTIONS (2)
  - Disease progression [Fatal]
  - Renal cell carcinoma [Fatal]
